FAERS Safety Report 8196611-0 (Version None)
Quarter: 2012Q1

REPORT INFORMATION
  Report Type: 
  Country: None (occurrence: None)
  Receive Date: 20120309
  Receipt Date: 20120228
  Transmission Date: 20120608
  Serious: Yes (Death, Other)
  Sender: FDA-Public Use
  Company Number: JP-GENZYME-THYM-1002143

PATIENT
  Sex: Male
  Weight: 22 kg

DRUGS (80)
  1. CLARITHROMYCIN [Concomitant]
     Indication: PRODUCT USED FOR UNKNOWN INDICATION
     Dosage: 80 MG, TID
     Dates: start: 20090216, end: 20090221
  2. SODIUM PICOSULFATE [Concomitant]
     Indication: CONSTIPATION
     Dosage: 10 ML, QD
     Dates: start: 20090222, end: 20090222
  3. SODIUM PICOSULFATE [Concomitant]
     Dosage: 10 ML, QD
     Dates: start: 20090305, end: 20090305
  4. GRANISETRON HCL [Concomitant]
     Indication: PRODUCT USED FOR UNKNOWN INDICATION
     Dosage: 3 MG, BID
     Dates: start: 20090218, end: 20090225
  5. CHLORPHENIRAMINE MALEATE [Concomitant]
     Dosage: UNK
     Dates: start: 20090318, end: 20090318
  6. CHLORPHENIRAMINE MALEATE [Concomitant]
     Dosage: 0.5 ML, UNK
     Dates: start: 20090322, end: 20090322
  7. MIXED AMINO ACID CARBOHYDRATE ELECTROLYTE VITAMIN COMBINED DRUG [Concomitant]
     Indication: PRODUCT USED FOR UNKNOWN INDICATION
     Dosage: 1103 ML, UNK
     Dates: start: 20090225, end: 20090331
  8. HAPTOGLOBINS [Concomitant]
     Indication: PRODUCT USED FOR UNKNOWN INDICATION
     Dosage: 2000 U, UNK
     Dates: start: 20090225, end: 20090225
  9. IMMUNE GLOBULIN (HUMAN) [Concomitant]
     Dosage: 2.5 MG, UNK
     Dates: start: 20090305, end: 20090305
  10. MINOCYCLINE HYDROCHLORIDE [Concomitant]
     Indication: PRODUCT USED FOR UNKNOWN INDICATION
     Dosage: UNK
     Dates: start: 20090317, end: 20090323
  11. AMBROXOL HYDROCHLORIDE [Concomitant]
     Indication: PRODUCT USED FOR UNKNOWN INDICATION
     Dosage: 15 MG, BID
     Dates: start: 20090216, end: 20090331
  12. POLYMYXIN B SULFATE [Concomitant]
     Indication: PRODUCT USED FOR UNKNOWN INDICATION
     Dosage: UNK
     Dates: start: 20090216, end: 20090324
  13. URSODIOL [Concomitant]
     Indication: PROPHYLAXIS
     Dosage: 100 MG, BID
     Dates: start: 20090218, end: 20090331
  14. CANDESARTAN CILEXETIL [Concomitant]
     Dosage: 4 MG, QD
     Dates: start: 20090331, end: 20090331
  15. HEPARIN [Concomitant]
     Dosage: UNK
     Dates: start: 20090310, end: 20090310
  16. TACROLIMUS [Concomitant]
     Indication: PRODUCT USED FOR UNKNOWN INDICATION
     Dosage: UNK
     Dates: start: 20090306, end: 20090306
  17. PROCATEROL HCL [Concomitant]
     Indication: PRODUCT USED FOR UNKNOWN INDICATION
     Dosage: 0.3 ML, BID
     Dates: start: 20090318, end: 20090324
  18. FLUDARABINE PHOSPHATE [Concomitant]
     Indication: CHRONIC GRANULOMATOUS DISEASE
     Dosage: 26 MG, UNK
     Route: 065
     Dates: start: 20090218, end: 20090223
  19. RAMOSETRON HYDROCHLORIDE [Concomitant]
     Indication: PRODUCT USED FOR UNKNOWN INDICATION
     Dosage: 0.3 MG, UNK
     Dates: start: 20090220, end: 20090220
  20. MENATETRENONE [Concomitant]
     Indication: PRODUCT USED FOR UNKNOWN INDICATION
     Dosage: 10 MG, UNK
     Dates: start: 20090224, end: 20090225
  21. MENATETRENONE [Concomitant]
     Dosage: 10 MG, UNK
     Dates: start: 20090323, end: 20090324
  22. METHOTREXATE [Concomitant]
     Dosage: 8.5 MG, UNK
     Dates: start: 20090228, end: 20090228
  23. METOCLOPRAMIDE [Concomitant]
     Indication: PRODUCT USED FOR UNKNOWN INDICATION
     Dosage: 5 MG, UNK
     Dates: start: 20090227, end: 20090227
  24. ITRACONAZOLE [Concomitant]
     Indication: INFECTION PROPHYLAXIS
     Dosage: UNK
     Route: 065
     Dates: start: 20090208, end: 20090212
  25. TACROLIMUS [Concomitant]
     Dosage: 1 MG, BID
     Dates: start: 20090328, end: 20090331
  26. CHLORPHENIRAMINE MALEATE [Concomitant]
     Dosage: 1.5 ML, QD
     Dates: start: 20090305, end: 20090306
  27. MELPHALAN HYDROCHLORIDE [Concomitant]
     Indication: PRODUCT USED FOR UNKNOWN INDICATION
     Dosage: 60 MG, QD
     Dates: start: 20090222, end: 20090223
  28. METHOTREXATE [Concomitant]
     Dosage: 8.5 MG, UNK
     Dates: start: 20090308, end: 20090308
  29. THYMOGLOBULIN [Suspect]
     Indication: BONE MARROW CONDITIONING REGIMEN
     Dosage: 50 MG, QD
     Route: 042
     Dates: start: 20090220, end: 20090223
  30. FLURBIPROFEN [Concomitant]
     Dosage: UNK
     Dates: start: 20090325, end: 20090325
  31. CANDESARTAN CILEXETIL [Concomitant]
     Indication: PRODUCT USED FOR UNKNOWN INDICATION
     Dosage: 4 MG, QD
     Dates: start: 20090225, end: 20090331
  32. HEPARIN [Concomitant]
     Dosage: UNK
     Dates: start: 20090313, end: 20090313
  33. TACROLIMUS [Concomitant]
     Dosage: 0.5 MG, BID
     Dates: start: 20090330, end: 20090331
  34. KETOPROFEN [Concomitant]
     Indication: PRODUCT USED FOR UNKNOWN INDICATION
     Dosage: UNK
     Dates: start: 20090314, end: 20090314
  35. LOPERAMIDE HYDROCHLORIDE [Concomitant]
     Indication: PRODUCT USED FOR UNKNOWN INDICATION
     Dosage: UNK
     Dates: start: 20090320, end: 20090322
  36. PREDNISOLONE [Concomitant]
     Indication: PRODUCT USED FOR UNKNOWN INDICATION
     Dosage: 15 MG, TID
     Dates: start: 20090325, end: 20090330
  37. CHLORPHENIRAMINE MALEATE [Concomitant]
     Indication: PREMEDICATION
     Dosage: 1 ML, QD
     Dates: start: 20090220, end: 20090225
  38. MENATETRENONE [Concomitant]
     Dosage: 10 MG, UNK
     Dates: start: 20090316, end: 20090318
  39. MANGANESE CHLORIDE ZINC SULFATE COMBINED DRUG [Concomitant]
     Indication: PRODUCT USED FOR UNKNOWN INDICATION
     Dosage: 2 ML, UNK
     Dates: start: 20090224, end: 20090331
  40. IMMUNE GLOBULIN (HUMAN) [Concomitant]
     Indication: PRODUCT USED FOR UNKNOWN INDICATION
     Dosage: 2.5 MG, UNK
     Dates: start: 20090312, end: 20090312
  41. PREDNISOLONE SODIUM SUCCINATE INJ [Concomitant]
     Indication: PRODUCT USED FOR UNKNOWN INDICATION
     Dosage: 10 MG, UNK
     Dates: start: 20090312, end: 20090317
  42. SULFAMETHOPRIM [Concomitant]
     Indication: PRODUCT USED FOR UNKNOWN INDICATION
     Dosage: UNK
     Dates: start: 20090216, end: 20090217
  43. CLARITHROMYCIN [Concomitant]
     Dosage: 80 MG, TID
     Dates: start: 20090223, end: 20090223
  44. HEPARIN [Concomitant]
     Indication: PRODUCT USED FOR UNKNOWN INDICATION
     Dosage: UNK
     Dates: start: 20090305, end: 20090305
  45. BUDESONIDE [Concomitant]
     Indication: PRODUCT USED FOR UNKNOWN INDICATION
     Dosage: 0.25 MG, BID
     Dates: start: 20090318, end: 20090324
  46. FAMOTIDINE [Concomitant]
     Indication: PRODUCT USED FOR UNKNOWN INDICATION
     Dosage: UNK
     Dates: start: 20090324, end: 20090331
  47. CEFOZOPRAN HYDROCHLORIDE [Concomitant]
     Indication: INFECTION PROPHYLAXIS
     Dosage: UNK
     Route: 065
     Dates: start: 20090217, end: 20090310
  48. CHLORPHENIRAMINE MALEATE [Concomitant]
     Dosage: 0.5 ML, UNK
     Dates: start: 20090311, end: 20090311
  49. CHLORPHENIRAMINE MALEATE [Concomitant]
     Dosage: 0.5 ML, UNK
     Dates: start: 20090316, end: 20090316
  50. ACYCLOVIR [Concomitant]
     Indication: INFECTION PROPHYLAXIS
     Dosage: 250 MG, QD
     Dates: start: 20090224, end: 20090311
  51. METHOTREXATE [Concomitant]
     Dosage: 8.5 MG, UNK
     Dates: start: 20090303, end: 20090303
  52. PREDNISOLONE SODIUM SUCCINATE INJ [Concomitant]
     Dosage: UNK
     Dates: start: 20090317, end: 20090324
  53. MEQUITAZINE [Concomitant]
     Indication: PRODUCT USED FOR UNKNOWN INDICATION
     Dosage: 3 MG, BID
     Dates: start: 20090216, end: 20090331
  54. TACROLIMUS [Concomitant]
     Dosage: UNK
     Dates: start: 20090313, end: 20090313
  55. BETAMETHASON [Concomitant]
     Indication: PRODUCT USED FOR UNKNOWN INDICATION
     Dosage: UNK
     Dates: start: 20090306, end: 20090306
  56. METHYLPREDNISOLONE SODIUM SUCCINATE [Concomitant]
     Indication: PREMEDICATION
     Dosage: 20 MG, QD
     Dates: start: 20090220, end: 20090224
  57. CHLORPHENIRAMINE MALEATE [Concomitant]
     Dosage: 0.5 ML, UNK
     Dates: start: 20090314, end: 20090314
  58. CHLORPHENIRAMINE MALEATE [Concomitant]
     Dosage: 0.5 ML, UNK
     Dates: start: 20090320, end: 20090320
  59. MEROPENEM [Concomitant]
     Indication: PRODUCT USED FOR UNKNOWN INDICATION
     Dosage: UNK
     Dates: start: 20090311, end: 20090323
  60. MIDAZOLAM [Concomitant]
     Indication: PRODUCT USED FOR UNKNOWN INDICATION
     Dosage: 3 ML, QD
     Dates: start: 20090216, end: 20090216
  61. FLURBIPROFEN [Concomitant]
     Indication: PRODUCT USED FOR UNKNOWN INDICATION
     Dosage: UNK
     Dates: start: 20090220, end: 20090220
  62. GLYCERIN [Concomitant]
     Indication: CONSTIPATION
     Dosage: 40 ML, QD
     Dates: start: 20090222, end: 20090224
  63. MONTELUKAST [Concomitant]
     Indication: PRODUCT USED FOR UNKNOWN INDICATION
     Dosage: 5 MG, QD
     Dates: start: 20090318, end: 20090331
  64. PREDNISOLONE [Concomitant]
     Dosage: 25 MG, TID
     Dates: start: 20090330, end: 20090331
  65. HEPARIN [Concomitant]
     Indication: PROPHYLAXIS
     Dosage: UNK
     Dates: start: 20090218, end: 20090331
  66. TEICOPLANIN [Concomitant]
     Indication: INFECTION PROPHYLAXIS
     Dosage: 100 MG, UNK
     Route: 065
     Dates: start: 20090220, end: 20090317
  67. MENATETRENONE [Concomitant]
     Dosage: 10 MG, UNK
     Dates: start: 20090303, end: 20090304
  68. HYDROCORTISONE SODIUM SUCCINATE [Concomitant]
     Indication: PRODUCT USED FOR UNKNOWN INDICATION
     Dosage: 100 MG, UNK
     Dates: start: 20090225, end: 20090225
  69. HYDROCORTISONE SODIUM SUCCINATE [Concomitant]
     Dosage: 100 MG, UNK
     Dates: start: 20090306, end: 20090306
  70. FILGRASTIM [Concomitant]
     Dosage: 300 MCG, UNK
     Dates: start: 20090328, end: 20090328
  71. TOTAL BODY IRRADIATION [Concomitant]
     Indication: CHRONIC GRANULOMATOUS DISEASE
     Dosage: UNK
     Route: 065
     Dates: start: 20090217, end: 20090218
  72. VORICONAZOLE [Concomitant]
     Indication: INFECTION PROPHYLAXIS
     Dosage: 50 MG, BID
     Route: 065
     Dates: start: 20090210, end: 20090525
  73. TACROLIMUS [Concomitant]
     Dosage: 60 MG, QD
     Dates: start: 20090224, end: 20090327
  74. FAMOTIDINE [Concomitant]
     Dosage: 10 MG, UNK
     Dates: start: 20090228, end: 20090323
  75. CHLORPHENIRAMINE MALEATE [Concomitant]
     Dosage: 0.5 ML, UNK
     Dates: start: 20090308, end: 20090308
  76. MENATETRENONE [Concomitant]
     Dosage: 10 MG, UNK
     Dates: start: 20090309, end: 20090311
  77. METHOTREXATE [Concomitant]
     Indication: PROPHYLAXIS AGAINST GRAFT VERSUS HOST DISEASE
     Dosage: 13 MG, UNK
     Dates: start: 20090226, end: 20090226
  78. FILGRASTIM [Concomitant]
     Indication: PRODUCT USED FOR UNKNOWN INDICATION
     Dosage: 300 MCG, UNK
     Dates: start: 20090302, end: 20090323
  79. FOSCARNET SODIUM [Concomitant]
     Indication: PRODUCT USED FOR UNKNOWN INDICATION
     Dosage: 7.68 MG, UNK
     Dates: start: 20090311, end: 20090331
  80. FREEZE-DRIED ION EXCHANGE RESI [Concomitant]
     Indication: PRODUCT USED FOR UNKNOWN INDICATION
     Dosage: 2.5 MG, QD
     Dates: start: 20090331, end: 20090331

REACTIONS (4)
  - CYTOMEGALOVIRUS TEST POSITIVE [None]
  - ACUTE RESPIRATORY DISTRESS SYNDROME [None]
  - POST TRANSPLANT LYMPHOPROLIFERATIVE DISORDER [None]
  - ACUTE GRAFT VERSUS HOST DISEASE IN SKIN [None]
